FAERS Safety Report 5928577-5 (Version None)
Quarter: 2008Q3

REPORT INFORMATION
  Report Type: 
  Country: None (occurrence: None)
  Receive Date: 20080923
  Receipt Date: 20080604
  Transmission Date: 20090109
  Serious: Yes (Hospitalization)
  Sender: FDA-Public Use
  Company Number: WAES 0806USA00787

PATIENT
  Age: 49 Year
  Sex: Male

DRUGS (3)
  1. VYTORIN [Suspect]
     Indication: BLOOD CHOLESTEROL INCREASED
     Dosage: 10-40 MG DAILY PO
     Route: 048
     Dates: start: 20071015, end: 20080106
  2. VYTORIN [Suspect]
     Indication: BLOOD CHOLESTEROL INCREASED
     Dosage: 10-40 MG DAILY PO
     Route: 048
     Dates: start: 20080107, end: 20080111
  3. BISOPROLOL FUMARATE [Concomitant]

REACTIONS (2)
  - DRUG INEFFECTIVE [None]
  - PANCREATITIS [None]
